FAERS Safety Report 13554957 (Version 1)
Quarter: 2017Q2

REPORT INFORMATION
  Report Type: Report from Study
  Country: BR (occurrence: BR)
  Receive Date: 20170517
  Receipt Date: 20170517
  Transmission Date: 20170830
  Serious: Yes (Death, Other)
  Sender: FDA-Public Use
  Company Number: BR-TEVA-768577ROM

PATIENT
  Age: 59 Year

DRUGS (3)
  1. FOLINIC ACID [Suspect]
     Active Substance: LEUCOVORIN
     Indication: COLORECTAL CANCER STAGE III
     Dosage: 20MG/M2/WEEK FOR SIX CONSECUTIVE WEEKS
     Route: 040
  2. FLUOROURACIL. [Suspect]
     Active Substance: FLUOROURACIL
     Indication: COLORECTAL CANCER STAGE III
     Dosage: 500MG/M2
     Route: 040
  3. OXALIPLATIN. [Suspect]
     Active Substance: OXALIPLATIN
     Indication: COLORECTAL CANCER STAGE III
     Dosage: 85MG/M2 AS A TWO HOUR INFUSION AT WEEKS 1, 3 AND 5
     Route: 040

REACTIONS (3)
  - Diarrhoea [Unknown]
  - Sepsis [Fatal]
  - Neutropenia [Fatal]
